FAERS Safety Report 9433784 (Version 1)
Quarter: 2013Q3

REPORT INFORMATION
  Report Type: Spontaneous
  Country: JP (occurrence: JP)
  Receive Date: 20130731
  Receipt Date: 20130731
  Transmission Date: 20140515
  Serious: Yes (Other)
  Sender: FDA-Public Use
  Company Number: JP-009507513-1307JPN016069

PATIENT
  Sex: 0

DRUGS (2)
  1. COSOPT OPHTHALMIC SOLUTION [Suspect]
     Route: 047
  2. TAPROS (TAFLUPROST) [Concomitant]
     Route: 047

REACTIONS (1)
  - Sudden hearing loss [Unknown]
